FAERS Safety Report 20789924 (Version 1)
Quarter: 2022Q2

REPORT INFORMATION
  Report Type: Spontaneous
  Country: US (occurrence: None)
  Receive Date: 20220505
  Receipt Date: 20220505
  Transmission Date: 20220721
  Serious: Yes (Disabling)
  Sender: FDA-Public Use
  Company Number: None

PATIENT
  Age: 48 Year
  Sex: Male
  Weight: 86.4 kg

DRUGS (4)
  1. BOTOX [Suspect]
     Active Substance: ONABOTULINUMTOXINA
  2. TESTOSTERONE [Concomitant]
     Active Substance: TESTOSTERONE
  3. cypionate HCG [Concomitant]
  4. ZYRTEC [Concomitant]
     Active Substance: CETIRIZINE HYDROCHLORIDE

REACTIONS (12)
  - Accidental exposure to product [None]
  - Anxiety [None]
  - Tachyphrenia [None]
  - Feeling abnormal [None]
  - Nausea [None]
  - Weight decreased [None]
  - Hypophagia [None]
  - Nervousness [None]
  - Muscular weakness [None]
  - Sexual dysfunction [None]
  - Insomnia [None]
  - Palpitations [None]

NARRATIVE: CASE EVENT DATE: 20220427
